FAERS Safety Report 5774493-1 (Version None)
Quarter: 2008Q2

REPORT INFORMATION
  Report Type: 
  Country: None (occurrence: None)
  Receive Date: 20080616
  Receipt Date: 20080530
  Transmission Date: 20081010
  Serious: Yes (Other)
  Sender: FDA-Public Use
  Company Number: JP-BOEHRINGER INGELHEIM GMBH, GERMANY-2008-BP-07860NB

PATIENT
  Sex: Male

DRUGS (3)
  1. MICARDIS [Suspect]
     Indication: HYPERTENSION
     Route: 048
     Dates: start: 20080328, end: 20080426
  2. VOLTAREN [Concomitant]
     Indication: OSTEOARTHRITIS
     Route: 048
     Dates: start: 20050101
  3. MUCOSTA [Concomitant]
     Indication: OSTEOARTHRITIS
     Route: 048
     Dates: start: 20050101

REACTIONS (1)
  - SUPRAVENTRICULAR EXTRASYSTOLES [None]
